FAERS Safety Report 25887047 (Version 2)
Quarter: 2025Q4

REPORT INFORMATION
  Report Type: Spontaneous
  Country: US (occurrence: US)
  Receive Date: 20251006
  Receipt Date: 20251017
  Transmission Date: 20260117
  Serious: Yes (Other)
  Sender: BRISTOL-MYERS SQUIBB COMPANY
  Company Number: US-BRISTOL-MYERS SQUIBB COMPANY-2025-135761

PATIENT
  Age: 76 Year
  Sex: Male

DRUGS (1)
  1. REVLIMID [Suspect]
     Active Substance: LENALIDOMIDE
     Indication: Mantle cell lymphoma
     Dosage: DAILY FOR 21 DAYS WITH A 7 DAY BREAK
     Dates: start: 20250723

REACTIONS (6)
  - Cerebrovascular accident [Unknown]
  - Oral mucosal blistering [Unknown]
  - Diarrhoea [Unknown]
  - Muscle spasms [Unknown]
  - Constipation [Unknown]
  - Fatigue [Unknown]
